FAERS Safety Report 5132283-7 (Version None)
Quarter: 2006Q4

REPORT INFORMATION
  Report Type: 
  Country: None (occurrence: None)
  Receive Date: 20061019
  Receipt Date: 20061019
  Transmission Date: 20070319
  Serious: Yes (Hospitalization)
  Sender: FDA-Public Use
  Company Number: None

PATIENT
  Age: 22 Year
  Sex: Male
  Weight: 136.1 kg

DRUGS (13)
  1. AUGMENTIN '500' [Suspect]
  2. ACETAMINOPHEN [Concomitant]
  3. LORATADINE [Concomitant]
  4. DM 10/GUAIFENESN [Concomitant]
  5. DIVALPROEX [Concomitant]
  6. ETODOLAC [Concomitant]
  7. FLUNISOLIDE [Concomitant]
  8. LEVALBUTEROL TART [Concomitant]
  9. OMEPRAZOLE [Concomitant]
  10. PRAZOSIN HCL [Concomitant]
  11. SERTRALINE HCL [Concomitant]
  12. TRAZODONE HCL [Concomitant]
  13. ZOLMITRIPTAN [Concomitant]

REACTIONS (1)
  - RASH [None]
